FAERS Safety Report 8405079-8 (Version None)
Quarter: 2012Q2

REPORT INFORMATION
  Report Type: 
  Country: None (occurrence: None)
  Receive Date: 20120601
  Receipt Date: 20120517
  Transmission Date: 20120825
  Serious: Yes (Other)
  Sender: FDA-Public Use
  Company Number: CHPA2012US011257

PATIENT
  Age: 73 Year
  Sex: Female

DRUGS (4)
  1. EXCEDRIN EXTRA STRENGTH TABLETS [Suspect]
     Indication: HEADACHE
     Dosage: UNK, UNK
     Route: 048
     Dates: start: 19600101
  2. EXCEDRIN (MIGRAINE) [Suspect]
     Indication: HEADACHE
     Dosage: 2-5 PER DAY
     Route: 048
     Dates: start: 19980101
  3. EXCEDRIN EXTRA STRENGTH TABLETS [Suspect]
     Dosage: UNK. UNK
     Route: 048
     Dates: start: 19600101
  4. VICODIN [Concomitant]

REACTIONS (4)
  - INTERVERTEBRAL DISC PROTRUSION [None]
  - HEADACHE [None]
  - ROAD TRAFFIC ACCIDENT [None]
  - FRACTURE [None]
